FAERS Safety Report 19436939 (Version 1)
Quarter: 2021Q2

REPORT INFORMATION
  Report Type: Spontaneous
  Country: US (occurrence: US)
  Receive Date: 20210618
  Receipt Date: 20210618
  Transmission Date: 20210717
  Serious: Yes (Other)
  Sender: FDA-Public Use
  Company Number: US-PFIZER INC-2021665410

PATIENT
  Age: 77 Year
  Sex: Male

DRUGS (2)
  1. XELJANZ [Suspect]
     Active Substance: TOFACITINIB CITRATE
     Dosage: 5 MG, 2X/DAY
  2. XELJANZ [Suspect]
     Active Substance: TOFACITINIB CITRATE
     Dosage: 10 MG, 2X/DAY (4 TABLETS DAILY IN TOTAL)
     Dates: start: 20210603

REACTIONS (3)
  - Rectal haemorrhage [Unknown]
  - Diarrhoea [Unknown]
  - Drug ineffective [Unknown]
